FAERS Safety Report 5362977-X (Version None)
Quarter: 2007Q2

REPORT INFORMATION
  Report Type: 
  Country: None (occurrence: None)
  Receive Date: 20070615
  Receipt Date: 20070531
  Transmission Date: 20071010
  Serious: Yes (Death)
  Sender: FDA-Public Use
  Company Number: 2007000673

PATIENT
  Age: 41 Year
  Sex: Female

DRUGS (9)
  1. TARCEVA [Suspect]
     Indication: LUNG ADENOCARCINOMA
     Dosage: 150 MG (QD), ORAL
     Route: 048
     Dates: start: 20070210, end: 20070330
  2. IPRATROPIUM BROMIDE [Concomitant]
  3. MST (MORPHINE SULFATE) [Concomitant]
  4. ZOPICLONE (ZOPICLONE) [Concomitant]
  5. ALPRAZOLAM [Concomitant]
  6. NEXIUM [Concomitant]
  7. ENOXAPARIN SODIUM [Concomitant]
  8. FUROSEMIDE [Concomitant]
  9. CYCLIZINE (CYCLIZINE) [Concomitant]

REACTIONS (3)
  - CARDIAC ARREST [None]
  - SUDDEN DEATH [None]
  - SYNCOPE [None]
